FAERS Safety Report 16187771 (Version 2)
Quarter: 2019Q2

REPORT INFORMATION
  Report Type: Spontaneous
  Country: HK (occurrence: HK)
  Receive Date: 20190412
  Receipt Date: 20190613
  Transmission Date: 20190711
  Serious: Yes (Other)
  Sender: FDA-Public Use
  Company Number: HK-SA-2019SA098058

PATIENT
  Age: 30 Year
  Sex: Female

DRUGS (3)
  1. MITOXANTRONE [Suspect]
     Active Substance: MITOXANTRONE HYDROCHLORIDE
     Indication: ACUTE MYELOID LEUKAEMIA
     Dosage: 12MG/M^2/DAY, 3 DAYS
  2. CLOFARABINE. [Suspect]
     Active Substance: CLOFARABINE
     Indication: ACUTE MYELOID LEUKAEMIA
     Dosage: 30 MG/M^2/DAY, 1 HOUR INFUSION 4 HOURS AFTERWARDS, 5 DAYS
     Route: 042
  3. CYTARABINE. [Suspect]
     Active Substance: CYTARABINE
     Indication: ACUTE MYELOID LEUKAEMIA
     Dosage: 750MG/M^2/DAY, 2 HOUR CONSTANT RATE INFUSION, 5 DAYS
     Route: 042

REACTIONS (9)
  - Acute myeloid leukaemia (in remission) [Unknown]
  - Haematoma [Unknown]
  - Thrombocytopenia [Unknown]
  - Coma scale abnormal [Unknown]
  - Blast cell count increased [Unknown]
  - Leukaemia recurrent [Unknown]
  - Off label use [Unknown]
  - Arteriovenous malformation [Unknown]
  - Haemorrhage [Unknown]

NARRATIVE: CASE EVENT DATE: 2018
